FAERS Safety Report 7034681-3 (Version None)
Quarter: 2010Q4

REPORT INFORMATION
  Report Type: 
  Country: None (occurrence: None)
  Receive Date: 20101008
  Receipt Date: 20100924
  Transmission Date: 20110411
  Serious: Yes (Hospitalization)
  Sender: FDA-Public Use
  Company Number: PHHY2010JP66865

PATIENT
  Sex: Female
  Weight: 42 kg

DRUGS (11)
  1. DIOVAN HCT [Suspect]
     Indication: HYPERTENSION
     Dosage: 2 DOSAGE FORM (80/12.5) DAILY
     Route: 048
     Dates: start: 20100810, end: 20100820
  2. DOXAZOSIN MESYLATE [Concomitant]
     Indication: HYPERTENSION
     Dosage: 1 MG, DAILY
     Route: 048
     Dates: start: 20100810, end: 20100820
  3. RIVOTRIL [Concomitant]
     Indication: FACIAL SPASM
     Dosage: 3 G, UNK
     Route: 048
     Dates: start: 19930101, end: 20100820
  4. GASTER [Concomitant]
     Indication: GASTRITIS
     Dosage: 20 MG
     Route: 048
     Dates: start: 19930101, end: 20100907
  5. LIPITOR [Concomitant]
     Indication: HYPERLIPIDAEMIA
     Dosage: 10 MG
     Route: 048
     Dates: start: 19930101, end: 20100907
  6. AMLODIPINE [Concomitant]
     Indication: HYPERTENSION
     Dosage: 10 MG
     Route: 048
     Dates: start: 20100608
  7. KERLONG [Concomitant]
     Indication: HYPERTENSION
     Dosage: 10 MG
     Route: 048
     Dates: start: 20100604, end: 20100820
  8. DOXAZOSIN MESYLATE [Concomitant]
     Dosage: UNK
     Route: 048
     Dates: start: 20100810, end: 20100820
  9. OMEPRAL [Concomitant]
     Indication: DECREASED APPETITE
     Dosage: 20 MG
     Route: 048
     Dates: start: 20100815, end: 20100820
  10. NITROGLYCERIN [Concomitant]
     Indication: HYPERTENSION
     Dosage: 10 MG
     Dates: start: 20100609, end: 20100907
  11. TOLEDOMIN [Concomitant]
     Indication: DEPRESSION
     Dosage: 50 MG, DAILY
     Route: 048
     Dates: start: 19930101, end: 20100820

REACTIONS (4)
  - DECREASED APPETITE [None]
  - HYPONATRAEMIA [None]
  - INAPPROPRIATE ANTIDIURETIC HORMONE SECRETION [None]
  - MALAISE [None]
